FAERS Safety Report 4548225-9 (Version None)
Quarter: 2004Q4

REPORT INFORMATION
  Report Type: 
  Country: None (occurrence: None)
  Receive Date: 20041227
  Receipt Date: 20041112
  Transmission Date: 20050328
  Serious: No
  Sender: FDA-Public Use
  Company Number: 04P-163-0276996-00

PATIENT
  Age: 44 Year
  Sex: Female
  Weight: 200 kg

DRUGS (12)
  1. HUMIRA [Suspect]
     Indication: RHEUMATOID ARTHRITIS
     Dosage: 40 MG, 1 IN 2  WK, SUBCUTANEOUS
     Route: 058
     Dates: start: 20041012
  2. METHOTREXATE [Concomitant]
  3. SUNDILAC [Concomitant]
  4. ATENOLOL [Concomitant]
  5. TYLENOL W/ CODEINE NO. 3 [Concomitant]
  6. AMITRIPTYLINE [Concomitant]
  7. METFORMIN HCL [Concomitant]
  8. CETIRIZINE HCL [Concomitant]
  9. CARTIA XT [Concomitant]
  10. FOLIC ACID [Concomitant]
  11. SPIRONOLACTONE [Concomitant]
  12. LEVOTHYROXINE [Concomitant]

REACTIONS (3)
  - INJECTION SITE BURNING [None]
  - INJECTION SITE PAIN [None]
  - NAUSEA [None]
